FAERS Safety Report 7760018-8 (Version None)
Quarter: 2011Q3

REPORT INFORMATION
  Report Type: 
  Country: None (occurrence: None)
  Receive Date: 20110919
  Receipt Date: 20110908
  Transmission Date: 20111222
  Serious: Yes (Hospitalization)
  Sender: FDA-Public Use
  Company Number: US-BAYER-2011-015015

PATIENT
  Age: 24 Year
  Sex: Female
  Weight: 73 kg

DRUGS (17)
  1. SUCRALFATE [Concomitant]
  2. ALBUTEROL [Concomitant]
  3. YAZ [Suspect]
     Indication: CONTRACEPTION
     Dosage: UNK
     Dates: start: 20060701, end: 20070301
  4. EFFEXOR [Concomitant]
  5. TRAZODONE HCL [Concomitant]
  6. ALPRAZOLAM [Concomitant]
  7. NEXIUM [Concomitant]
  8. YAZ [Suspect]
     Indication: PREMENSTRUAL SYNDROME
  9. TRIAMTERENE [Concomitant]
  10. SINGULAIR [Concomitant]
  11. POTASSIUM [Concomitant]
  12. FLUCONAZOLE [Concomitant]
  13. YASMIN [Suspect]
     Indication: PREMENSTRUAL SYNDROME
  14. YASMIN [Suspect]
     Indication: CONTRACEPTION
     Dosage: UNK
     Dates: start: 20050901, end: 20060701
  15. CIPROFLOXACIN [Concomitant]
  16. PHENTERMINE [Concomitant]
  17. POLYETHYLENE GLYCOL [Concomitant]

REACTIONS (6)
  - PAIN [None]
  - ANXIETY [None]
  - GALLBLADDER INJURY [None]
  - DEPRESSION [None]
  - MENTAL DISORDER [None]
  - CHOLELITHIASIS [None]
